FAERS Safety Report 7853667-X (Version None)
Quarter: 2011Q4

REPORT INFORMATION
  Report Type: 
  Country: None (occurrence: None)
  Receive Date: 20111026
  Receipt Date: 20111017
  Transmission Date: 20120403
  Serious: Yes (Other)
  Sender: FDA-Public Use
  Company Number: CA-ROCHE-1006372

PATIENT
  Sex: Female

DRUGS (1)
  1. XOLAIR [Suspect]
     Indication: ASTHMA
     Route: 058
     Dates: start: 20100604

REACTIONS (5)
  - COUGH [None]
  - RIB FRACTURE [None]
  - RHINORRHOEA [None]
  - DIZZINESS [None]
  - NAUSEA [None]
